FAERS Safety Report 9113018 (Version 1)
Quarter: 2013Q1

REPORT INFORMATION
  Report Type: Spontaneous
  Country: SE (occurrence: SE)
  Receive Date: 20130211
  Receipt Date: 20130211
  Transmission Date: 20140127
  Serious: Yes (Other)
  Sender: FDA-Public Use
  Company Number: SE-PFIZER INC-2013048001

PATIENT
  Sex: Female

DRUGS (1)
  1. SYNARELA [Suspect]
     Indication: ENDOMETRIOSIS
     Dosage: 200 UG, UNK
     Dates: start: 201008

REACTIONS (9)
  - Fibromyalgia [Not Recovered/Not Resolved]
  - Thrombophlebitis superficial [Not Recovered/Not Resolved]
  - Hypotension [Not Recovered/Not Resolved]
  - Hypoaesthesia [Not Recovered/Not Resolved]
  - Muscle spasms [Not Recovered/Not Resolved]
  - Headache [Not Recovered/Not Resolved]
  - Pyrexia [Not Recovered/Not Resolved]
  - Personality change [Not Recovered/Not Resolved]
  - Depressed mood [Not Recovered/Not Resolved]
